FAERS Safety Report 6929850-4 (Version None)
Quarter: 2010Q3

REPORT INFORMATION
  Report Type: 
  Country: None (occurrence: None)
  Receive Date: 20100817
  Receipt Date: 20100817
  Transmission Date: 20110219
  Serious: No
  Sender: FDA-Public Use
  Company Number: None

PATIENT
  Sex: Male

DRUGS (1)
  1. LEVOTHYROXINE SODIUM [Suspect]
     Indication: HYPOTHYROIDISM
     Dosage: 75 MCG 1XD PO
     Route: 048
     Dates: start: 20100101

REACTIONS (3)
  - MYALGIA [None]
  - PAIN IN EXTREMITY [None]
  - PRODUCT SUBSTITUTION ISSUE [None]
